FAERS Safety Report 8981016 (Version 4)
Quarter: 2013Q1

REPORT INFORMATION
  Report Type: Spontaneous
  Country: IT (occurrence: IT)
  Receive Date: 20121221
  Receipt Date: 20130117
  Transmission Date: 20140127
  Serious: Yes (Death)
  Sender: FDA-Public Use
  Company Number: IT-009507513-1212ITA008018

PATIENT
  Age: 78 Year
  Sex: Male

DRUGS (2)
  1. FOSAMAX [Suspect]
     Indication: PLASMA CELL MYELOMA
     Dosage: 10 MG, QW
     Route: 048
     Dates: start: 19970101, end: 19990101
  2. AREDIA [Concomitant]
     Indication: PLASMA CELL MYELOMA
     Dosage: 1 DF, UNK
     Route: 042

REACTIONS (1)
  - Osteonecrosis of jaw [Fatal]
